FAERS Safety Report 5956539-0 (Version None)
Quarter: 2008Q4

REPORT INFORMATION
  Report Type: 
  Country: None (occurrence: None)
  Receive Date: 20081118
  Receipt Date: 20081117
  Transmission Date: 20090506
  Serious: Yes (Other)
  Sender: FDA-Public Use
  Company Number: D0058190A

PATIENT
  Age: 67 Year
  Sex: Male
  Weight: 90 kg

DRUGS (5)
  1. AVANDIA [Suspect]
     Dosage: 4MG PER DAY
     Route: 048
     Dates: start: 20071101, end: 20080601
  2. GLIMEPIRIDE [Suspect]
     Route: 065
  3. ASPIRIN [Concomitant]
     Dosage: 100MG PER DAY
     Route: 065
  4. TORSEMIDE [Concomitant]
     Dosage: 10MG PER DAY
     Route: 065
  5. ENALAPRIL MALEATE [Concomitant]
     Dosage: 10MG TWICE PER DAY
     Route: 065

REACTIONS (8)
  - FATIGUE [None]
  - LIP DRY [None]
  - NOCTURNAL DYSPNOEA [None]
  - ORAL DISORDER [None]
  - OROPHARYNGEAL SWELLING [None]
  - PRODUCT QUALITY ISSUE [None]
  - PULMONARY OEDEMA [None]
  - SLEEP APNOEA SYNDROME [None]
